FAERS Safety Report 9423477 (Version 1)
Quarter: 2013Q3

REPORT INFORMATION
  Report Type: Spontaneous
  Country: CA (occurrence: CA)
  Receive Date: 20130726
  Receipt Date: 20130726
  Transmission Date: 20140515
  Serious: Yes (Other)
  Sender: FDA-Public Use
  Company Number: PHHY2013CA078127

PATIENT
  Sex: Female

DRUGS (2)
  1. ACETYLSALICYLIC ACID [Suspect]
  2. CIPROFLOXACIN [Concomitant]
     Indication: CYSTITIS

REACTIONS (2)
  - Joint injury [Not Recovered/Not Resolved]
  - Ulcer haemorrhage [Unknown]
